FAERS Safety Report 17965944 (Version 1)
Quarter: 2020Q3

REPORT INFORMATION
  Report Type: Spontaneous
  Country: GB (occurrence: GB)
  Receive Date: 20200701
  Receipt Date: 20200701
  Transmission Date: 20201103
  Serious: Yes (Death, Hospitalization, Other)
  Sender: FDA-Public Use
  Company Number: GB-AUROBINDO-AUR-APL-2009-01501

PATIENT
  Age: 71 Year
  Sex: Female

DRUGS (1)
  1. AMOXICILLIN CAPSULES 250MG [Suspect]
     Active Substance: AMOXICILLIN
     Indication: UPPER RESPIRATORY TRACT INFECTION
     Dosage: UNK UNK,UNK,
     Route: 065

REACTIONS (15)
  - White blood cell count increased [Unknown]
  - Gastritis erosive [Unknown]
  - Haematochezia [Unknown]
  - Blister [Unknown]
  - Diarrhoea [Unknown]
  - Genital erosion [Unknown]
  - Streptococcal infection [Unknown]
  - Erosive oesophagitis [Unknown]
  - Toxic epidermal necrolysis [Fatal]
  - Abdominal distension [Unknown]
  - C-reactive protein increased [Unknown]
  - Stevens-Johnson syndrome [Unknown]
  - Eye pain [Unknown]
  - Hypothermia [Unknown]
  - Lip erosion [Unknown]
